FAERS Safety Report 8080313 (Version 2)
Quarter: 2013Q2

REPORT INFORMATION
  Report Type: Report from Study
  Country: MX (occurrence: MX)
  Receive Date: 20110808
  Receipt Date: 20130611
  Transmission Date: 20140414
  Serious: Yes (Other)
  Sender: FDA-Public Use
  Company Number: PHHY2011MX67925

PATIENT
  Age: 74 Year
  Sex: Female

DRUGS (1)
  1. EXFORGE HCT [Suspect]
     Indication: HYPERTENSION
     Dosage: (VALS 320 MG, AMLO 10 MG, HYDR 25 MG) 1 DF, PER DAY
     Dates: start: 201105, end: 201305

REACTIONS (1)
  - Chondropathy [Recovered/Resolved]
